FAERS Safety Report 10706750 (Version 1)
Quarter: 2015Q1

REPORT INFORMATION
  Report Type: Spontaneous
  Country: US (occurrence: None)
  Receive Date: 20150109
  Receipt Date: 20150109
  Transmission Date: 20150721
  Serious: No
  Sender: FDA-Public Use
  Company Number: None

PATIENT
  Age: 59 Year
  Sex: Male

DRUGS (1)
  1. TESTOSTERONE CYPIONATE. [Suspect]
     Active Substance: TESTOSTERONE CYPIONATE
     Indication: BLOOD TESTOSTERONE DECREASED
     Dosage: INTO THE MUSCLE
     Route: 030

REACTIONS (3)
  - Erection increased [None]
  - Erectile dysfunction [None]
  - Therapy cessation [None]

NARRATIVE: CASE EVENT DATE: 20140601
